FAERS Safety Report 16671272 (Version 2)
Quarter: 2020Q2

REPORT INFORMATION
  Report Type: Report from Study
  Country: None (occurrence: US)
  Receive Date: 20190805
  Receipt Date: 20200428
  Transmission Date: 20200713
  Serious: Yes (Hospitalization, Other)
  Sender: FDA-Public Use
  Company Number: US-ABBVIE-19K-163-2874946-00

PATIENT
  Age: 9 Year
  Sex: Male
  Weight: 35.8 kg

DRUGS (4)
  1. HUMIRA [Suspect]
     Active Substance: ADALIMUMAB
     Indication: CROHN^S DISEASE
     Dosage: DAY 1
     Route: 058
     Dates: start: 201907, end: 201907
  2. HUMIRA [Suspect]
     Active Substance: ADALIMUMAB
     Dosage: DAY 7
     Route: 058
     Dates: start: 2019, end: 2019
  3. HUMIRA [Suspect]
     Active Substance: ADALIMUMAB
     Dosage: DAY 14
     Route: 058
     Dates: start: 2019, end: 201911
  4. SULFASALAZINE. [Concomitant]
     Active Substance: SULFASALAZINE
     Indication: PRODUCT USED FOR UNKNOWN INDICATION

REACTIONS (4)
  - Crohn^s disease [Unknown]
  - Off label use [Unknown]
  - Haematochezia [Recovering/Resolving]
  - Drug ineffective [Unknown]

NARRATIVE: CASE EVENT DATE: 201911
